FAERS Safety Report 15444484 (Version 2)
Quarter: 2019Q2

REPORT INFORMATION
  Report Type: Spontaneous
  Country: US (occurrence: US)
  Receive Date: 20180928
  Receipt Date: 20190527
  Transmission Date: 20190711
  Serious: Yes (Other)
  Sender: FDA-Public Use
  Company Number: US-SA-2018SA137910

PATIENT
  Age: 59 Year
  Sex: Female
  Weight: 91 kg

DRUGS (7)
  1. EFUDEX [Concomitant]
     Active Substance: FLUOROURACIL
  2. NEOSAR [Concomitant]
     Active Substance: CYCLOPHOSPHAMIDE
     Dosage: UNK
  3. CYTOXAN [Concomitant]
     Active Substance: CYCLOPHOSPHAMIDE
  4. DOCETAXEL. [Suspect]
     Active Substance: DOCETAXEL
     Indication: BREAST CANCER FEMALE
     Dosage: 150 MG, Q3W
     Route: 042
     Dates: start: 20141209, end: 20141209
  5. DOCETAXEL. [Suspect]
     Active Substance: DOCETAXEL
     Dosage: 150 MG, Q3W
     Route: 042
     Dates: start: 20150210, end: 20150210
  6. LOSARTIN [Concomitant]
     Active Substance: LOSARTAN
     Dosage: UNK
     Dates: start: 20130101
  7. ANASTROZOLE. [Concomitant]
     Active Substance: ANASTROZOLE

REACTIONS (2)
  - Alopecia [Not Recovered/Not Resolved]
  - Psychological trauma [Unknown]

NARRATIVE: CASE EVENT DATE: 20141223
